FAERS Safety Report 5781932-9 (Version None)
Quarter: 2008Q2

REPORT INFORMATION
  Report Type: 
  Country: None (occurrence: None)
  Receive Date: 20080623
  Receipt Date: 20080617
  Transmission Date: 20081010
  Serious: Yes (Other)
  Sender: FDA-Public Use
  Company Number: B0525091A

PATIENT
  Age: 81 Year
  Sex: Male

DRUGS (3)
  1. SALMETEROL XINAFOATE [Suspect]
     Indication: CHRONIC OBSTRUCTIVE PULMONARY DISEASE
     Route: 065
  2. LOSARTAN POTASSIUM [Concomitant]
     Route: 065
  3. AMLODIPINE [Concomitant]
     Route: 065

REACTIONS (2)
  - HYPERGLYCAEMIA [None]
  - TYPE 2 DIABETES MELLITUS [None]
